FAERS Safety Report 9407374 (Version 1)
Quarter: 2013Q3

REPORT INFORMATION
  Report Type: Spontaneous
  Country: IT (occurrence: IT)
  Receive Date: 20130718
  Receipt Date: 20130718
  Transmission Date: 20140515
  Serious: Yes (Other)
  Sender: FDA-Public Use
  Company Number: IT-TEVA-418586ISR

PATIENT
  Age: 56 Year
  Sex: Male

DRUGS (7)
  1. OXALIPLATINO TEVA [Suspect]
     Indication: COLON CANCER
     Route: 042
     Dates: start: 20130410, end: 20130620
  2. FLUOROURACILE TEVA [Suspect]
     Indication: COLON CANCER
     Route: 042
     Dates: start: 20130410, end: 20130620
  3. FLUOROURACILE TEVA [Suspect]
     Route: 042
     Dates: start: 20130410, end: 20130620
  4. SOLDESAM [Concomitant]
     Dosage: 8 MILLIGRAM DAILY;
     Route: 042
     Dates: start: 20130410, end: 20130620
  5. RANIDIL [Concomitant]
     Dosage: 100 MILLIGRAM DAILY;
     Route: 042
     Dates: start: 20130410, end: 20130620
  6. ONDANSETRONE HIKMA [Concomitant]
     Dosage: 8 MILLIGRAM DAILY;
     Route: 042
     Dates: start: 20130410, end: 20130620
  7. LEVOFOLENE [Concomitant]
     Dosage: 132 MILLIGRAM DAILY;
     Route: 042

REACTIONS (5)
  - Diarrhoea [Unknown]
  - Fatigue [Unknown]
  - Pain [Unknown]
  - Formication [Unknown]
  - Skin disorder [Unknown]
